FAERS Safety Report 7826586-2 (Version None)
Quarter: 2011Q4

REPORT INFORMATION
  Report Type: 
  Country: None (occurrence: None)
  Receive Date: 20111020
  Receipt Date: 20110815
  Transmission Date: 20120403
  Serious: No
  Sender: FDA-Public Use
  Company Number: US-MYLANLABS-2011S1015483

PATIENT
  Age: 97 Year
  Sex: Male

DRUGS (1)
  1. TAMSULOSIN HCL [Suspect]
     Indication: BENIGN PROSTATIC HYPERPLASIA
     Route: 048
     Dates: start: 20110712, end: 20110715

REACTIONS (7)
  - DIZZINESS [None]
  - CHILLS [None]
  - ASTHENIA [None]
  - GAIT DISTURBANCE [None]
  - CONSTIPATION [None]
  - DISORIENTATION [None]
  - CONFUSIONAL STATE [None]
